FAERS Safety Report 8734506 (Version 2)
Quarter: 2015Q3

REPORT INFORMATION
  Report Type: Report from Study
  Country: US (occurrence: US)
  Receive Date: 20120912
  Receipt Date: 20150713
  Transmission Date: 20151125
  Serious: Yes (Death, Hospitalization, Other)
  Sender: FDA-Public Use
  Company Number: US-ROCHE-1097943

PATIENT
  Age: 55 Year
  Sex: Female

DRUGS (23)
  1. CARDIZEM [Concomitant]
     Active Substance: DILTIAZEM HYDROCHLORIDE
     Route: 048
  2. LIDOCAINE. [Concomitant]
     Active Substance: LIDOCAINE
     Dosage: 4 MG/ MIN
     Route: 065
  3. LIDOCAINE. [Concomitant]
     Active Substance: LIDOCAINE
     Route: 065
  4. ECOTRIN [Concomitant]
     Active Substance: ASPIRIN
  5. ACTIVASE [Suspect]
     Active Substance: ALTEPLASE
     Indication: ATRIOVENTRICULAR BLOCK COMPLETE
  6. ZANTAC [Concomitant]
     Active Substance: RANITIDINE HYDROCHLORIDE
     Route: 048
  7. ALPRAZOLAM. [Concomitant]
     Active Substance: ALPRAZOLAM
  8. PROCHLORPERAZINE. [Concomitant]
     Active Substance: PROCHLORPERAZINE
     Route: 065
  9. CODEINE [Concomitant]
     Active Substance: CODEINE
     Route: 048
  10. NUBAIN [Concomitant]
     Active Substance: NALBUPHINE HYDROCHLORIDE
     Route: 042
  11. DOPAMINE [Concomitant]
     Active Substance: DOPAMINE\DOPAMINE HYDROCHLORIDE
  12. RANITIDINE [Concomitant]
     Active Substance: RANITIDINE\RANITIDINE HYDROCHLORIDE
     Route: 048
  13. MEPERIDINE [Concomitant]
     Active Substance: MEPERIDINE
  14. ACTIVASE [Suspect]
     Active Substance: ALTEPLASE
     Indication: MYOCARDIAL INFARCTION
     Route: 042
  15. DILTIAZEM [Concomitant]
     Active Substance: DILTIAZEM
  16. ACTIVASE [Suspect]
     Active Substance: ALTEPLASE
     Indication: CARDIOGENIC SHOCK
     Route: 042
  17. NITROGLYCERINE [Concomitant]
     Active Substance: NITROGLYCERIN
     Dosage: 8 UG/KG/MIN
     Route: 065
  18. NITROGLYCERINE [Concomitant]
     Active Substance: NITROGLYCERIN
     Route: 065
  19. ASPIRIN. [Concomitant]
     Active Substance: ASPIRIN
     Route: 048
  20. METOPROLOL TARTRATE. [Concomitant]
     Active Substance: METOPROLOL TARTRATE
     Route: 065
  21. TYLENOL [Concomitant]
     Active Substance: ACETAMINOPHEN
  22. DSS [Concomitant]
     Active Substance: DOCUSATE SODIUM
     Route: 065
  23. NALBUPHINE [Concomitant]
     Active Substance: NALBUPHINE
     Route: 065

REACTIONS (13)
  - Ventricular tachycardia [Unknown]
  - Blood creatine phosphokinase increased [Unknown]
  - Hyponatraemia [Unknown]
  - Nausea [Unknown]
  - Chest discomfort [Unknown]
  - Dizziness [Unknown]
  - Angina pectoris [Unknown]
  - Cardiogenic shock [Fatal]
  - Palpitations [Unknown]
  - Ventricular fibrillation [Unknown]
  - Hypotension [Unknown]
  - Atrioventricular block second degree [Unknown]
  - Atrioventricular block complete [Unknown]
